FAERS Safety Report 7164597-3 (Version None)
Quarter: 2010Q4

REPORT INFORMATION
  Report Type: 
  Country: None (occurrence: None)
  Receive Date: 20101123
  Receipt Date: 20100922
  Transmission Date: 20110411
  Serious: No
  Sender: FDA-Public Use
  Company Number: 016427

PATIENT
  Sex: Male
  Weight: 54.4 kg

DRUGS (1)
  1. CIMZIA [Suspect]
     Dosage: TWO INJECTIONS EVERY MONTH, SUBCUTANEOUS
     Route: 058
     Dates: start: 20100101

REACTIONS (4)
  - CROHN'S DISEASE [None]
  - DRUG INEFFECTIVE [None]
  - PYREXIA [None]
  - WEIGHT DECREASED [None]
